FAERS Safety Report 6108965-7 (Version None)
Quarter: 2009Q1

REPORT INFORMATION
  Report Type: 
  Country: None (occurrence: None)
  Receive Date: 20090310
  Receipt Date: 20090303
  Transmission Date: 20090719
  Serious: Yes (Other)
  Sender: FDA-Public Use
  Company Number: ES-CELGENEUS-144-21880-08091706

PATIENT
  Sex: Male
  Weight: 83 kg

DRUGS (4)
  1. REVLIMID [Suspect]
     Indication: MYELOFIBROSIS
     Route: 048
     Dates: start: 20070730, end: 20080924
  2. ASPIRIN [Concomitant]
     Route: 048
     Dates: start: 20070730
  3. ALLOPURINOL [Concomitant]
     Route: 048
     Dates: start: 20070730
  4. FUROSEMIDE [Concomitant]
     Route: 065

REACTIONS (1)
  - FLUID RETENTION [None]
